FAERS Safety Report 14144094 (Version 1)
Quarter: 2017Q4

REPORT INFORMATION
  Report Type: Spontaneous
  Country: US (occurrence: None)
  Receive Date: 20171030
  Receipt Date: 20171030
  Transmission Date: 20180321
  Serious: No
  Sender: FDA-Public Use
  Company Number: None

PATIENT
  Age: 54 Year
  Sex: Female

DRUGS (11)
  1. LEVOTHYROXIN [Concomitant]
     Active Substance: LEVOTHYROXINE
  2. PREDNISONE. [Concomitant]
     Active Substance: PREDNISONE
  3. VICODIN [Concomitant]
     Active Substance: ACETAMINOPHEN\HYDROCODONE BITARTRATE
  4. VITAMIN B12 [Concomitant]
     Active Substance: CYANOCOBALAMIN
  5. XELJANZ [Suspect]
     Active Substance: TOFACITINIB CITRATE
     Indication: RHEUMATOID ARTHRITIS
     Route: 048
     Dates: start: 20170804
  6. CLONOPIN [Concomitant]
     Active Substance: CLONAZEPAM
  7. FOLIC ACID. [Concomitant]
     Active Substance: FOLIC ACID
  8. TIZANIDINE. [Concomitant]
     Active Substance: TIZANIDINE
  9. LEXAPRO [Concomitant]
     Active Substance: ESCITALOPRAM OXALATE
  10. LYRICA [Concomitant]
     Active Substance: PREGABALIN
  11. METFORMIN [Concomitant]
     Active Substance: METFORMIN HYDROCHLORIDE

REACTIONS (4)
  - Rheumatoid arthritis [None]
  - Therapy cessation [None]
  - Pain [None]
  - Loss of personal independence in daily activities [None]
